FAERS Safety Report 24056222 (Version 1)
Quarter: 2024Q3

REPORT INFORMATION
  Report Type: Spontaneous
  Country: US (occurrence: None)
  Receive Date: 20240704
  Receipt Date: 20240704
  Transmission Date: 20241017
  Serious: Yes (Other)
  Sender: Public
  Company Number: None

PATIENT
  Sex: Female

DRUGS (34)
  1. TREMFYA [Suspect]
     Active Substance: GUSELKUMAB
     Route: 058
     Dates: start: 20240405
  2. CYMBALTA [Concomitant]
     Active Substance: DULOXETINE HYDROCHLORIDE
  3. FREESTYLE KIT FREEDOM [Concomitant]
  4. HUMIRA [Concomitant]
     Active Substance: ADALIMUMAB
  5. NALTERXONE [Concomitant]
  6. TALTZ [Concomitant]
     Active Substance: IXEKIZUMAB
  7. DULOXETINE [Concomitant]
     Active Substance: DULOXETINE
  8. SEMGLEE [Concomitant]
  9. INSULIN ASPA INJ FLEXPEN [Concomitant]
  10. MOUNJARO [Concomitant]
     Active Substance: TIRZEPATIDE
  11. CEPHALEXIN [Concomitant]
     Active Substance: CEPHALEXIN
  12. GLIPIZIDE ER [Concomitant]
     Active Substance: GLIPIZIDE
  13. FENOFIBRATE [Concomitant]
     Active Substance: FENOFIBRATE
  14. VITAMIN D3 [Concomitant]
     Active Substance: CHOLECALCIFEROL
  15. BD PEN NEEDL MIS [Concomitant]
  16. REXULTI [Concomitant]
     Active Substance: BREXPIPRAZOLE
  17. INSULIN ASPA [Concomitant]
  18. DEXTROAMPHET SACCHARAT, AMPHET ASPARTATE, DEXTROAMPHET SULFATE AND AMP [Concomitant]
     Active Substance: AMPHETAMINE ASPARTATE\AMPHETAMINE SULFATE\DEXTROAMPHETAMINE SACCHARATE\DEXTROAMPHETAMINE SULFATE
  19. OZEMPIC [Concomitant]
     Active Substance: SEMAGLUTIDE
  20. FENOFIBRATE [Concomitant]
     Active Substance: FENOFIBRATE
  21. GLYCOPYRROL [Concomitant]
  22. DEXTROAMPHET SACCHARAT, AMPHET ASPARTATE, DEXTROAMPHET SULFATE AND AMP [Concomitant]
     Active Substance: AMPHETAMINE ASPARTATE\AMPHETAMINE SULFATE\DEXTROAMPHETAMINE SACCHARATE\DEXTROAMPHETAMINE SULFATE
  23. PROPRANOLOL [Concomitant]
     Active Substance: PROPRANOLOL HYDROCHLORIDE
  24. REXULTI [Concomitant]
     Active Substance: BREXPIPRAZOLE
  25. CEPHALEXIN [Concomitant]
     Active Substance: CEPHALEXIN
  26. ONDANSETRON [Concomitant]
     Active Substance: ONDANSETRON
  27. REPATHA [Concomitant]
     Active Substance: EVOLOCUMAB
  28. GLIPIZIDE ER [Concomitant]
     Active Substance: GLIPIZIDE
  29. VITAMIN D [Concomitant]
     Active Substance: VITAMIN D NOS
  30. SOLIFENACIN [Concomitant]
     Active Substance: SOLIFENACIN
  31. MELOXICAM [Concomitant]
     Active Substance: MELOXICAM
  32. METOPROL SUC [Concomitant]
  33. GLIPIZIDE ER [Concomitant]
     Active Substance: GLIPIZIDE
  34. VITAMIN D3 [Concomitant]
     Active Substance: CHOLECALCIFEROL

REACTIONS (2)
  - Pain [None]
  - Therapy interrupted [None]
